FAERS Safety Report 18277720 (Version 3)
Quarter: 2020Q4

REPORT INFORMATION
  Report Type: Spontaneous
  Country: JP (occurrence: JP)
  Receive Date: 20200917
  Receipt Date: 20201217
  Transmission Date: 20210113
  Serious: Yes (Death, Other)
  Sender: FDA-Public Use
  Company Number: JP-ASTELLAS-2020JP013794

PATIENT
  Age: 71 Year
  Sex: Male

DRUGS (11)
  1. ZOLADEX [Concomitant]
     Active Substance: GOSERELIN ACETATE
     Indication: HORMONE-REFRACTORY PROSTATE CANCER
     Dosage: 10.8 MG, ONCE/12 WEEKS
     Route: 058
     Dates: start: 200910
  2. METGLUCO [Concomitant]
     Active Substance: METFORMIN HYDROCHLORIDE
     Indication: DIABETES MELLITUS
     Route: 048
  3. XTANDI [Suspect]
     Active Substance: ENZALUTAMIDE
     Indication: HORMONE-REFRACTORY PROSTATE CANCER
     Route: 048
     Dates: start: 20160115, end: 20170830
  4. BAYASPIRIN [Concomitant]
     Active Substance: ASPIRIN
     Indication: CORONARY ARTERY STENOSIS
     Route: 048
  5. BAYASPIRIN [Concomitant]
     Active Substance: ASPIRIN
     Indication: MYOCARDIAL ISCHAEMIA
  6. JANUVIA [Concomitant]
     Active Substance: SITAGLIPTIN PHOSPHATE
     Indication: DIABETES MELLITUS
     Route: 048
  7. SEIBULE [Concomitant]
     Active Substance: MIGLITOL
     Indication: DIABETES MELLITUS
     Route: 048
  8. OLMETEC [Concomitant]
     Active Substance: OLMESARTAN MEDOXOMIL
     Indication: HYPERTENSION
     Route: 048
  9. NIFEDIPINE CR SANWA [Concomitant]
     Indication: HYPERTENSION
     Route: 048
  10. CRESTOR [Concomitant]
     Active Substance: ROSUVASTATIN CALCIUM
     Indication: HYPERLIPIDAEMIA
     Route: 048
  11. NEXIUM [Concomitant]
     Active Substance: ESOMEPRAZOLE MAGNESIUM
     Indication: GASTROOESOPHAGEAL REFLUX DISEASE
     Route: 048

REACTIONS (4)
  - Prostate cancer [Fatal]
  - Metastases to bone [Not Recovered/Not Resolved]
  - Prostatic specific antigen increased [Fatal]
  - Cancer pain [Not Recovered/Not Resolved]

NARRATIVE: CASE EVENT DATE: 20160310
